FAERS Safety Report 21075066 (Version 1)
Quarter: 2022Q3

REPORT INFORMATION
  Report Type: Spontaneous
  Country: JP (occurrence: None)
  Receive Date: 20220713
  Receipt Date: 20220713
  Transmission Date: 20221027
  Serious: Yes (Other)
  Sender: FDA-Public Use
  Company Number: 2022A253283

PATIENT

DRUGS (1)
  1. SEROQUEL [Suspect]
     Active Substance: QUETIAPINE FUMARATE
     Indication: Delirium
     Dosage: SMALL AMOUNT, UNKNOWN FREQ. BEFORE BEDTIME
     Route: 048

REACTIONS (3)
  - Delirium [Unknown]
  - Blood glucose increased [Recovering/Resolving]
  - Off label use [Unknown]
